FAERS Safety Report 19407910 (Version 2)
Quarter: 2021Q4

REPORT INFORMATION
  Report Type: Report from Study
  Country: FR (occurrence: FR)
  Receive Date: 20210611
  Receipt Date: 20211005
  Transmission Date: 20220303
  Serious: Yes (Hospitalization)
  Sender: FDA-Public Use
  Company Number: FR-ROCHE-2798644

PATIENT
  Age: 70 Year
  Sex: Male
  Weight: 76 kg

DRUGS (6)
  1. ATEZOLIZUMAB [Suspect]
     Active Substance: ATEZOLIZUMAB
     Indication: Bladder transitional cell carcinoma
     Dosage: DOSE OF ATEZOLIZUMAB BEFORE SAE ON 07/JAN/2021
     Route: 041
     Dates: start: 20200115
  2. BCG VACCINE [Suspect]
     Active Substance: BCG VACCINE
     Indication: Bladder transitional cell carcinoma
     Dosage: DOSE OF BCG BEFORE SAE ON 10/FEB/2021
     Route: 065
     Dates: start: 20200115
  3. DICLOFENAC [Suspect]
     Active Substance: DICLOFENAC
     Indication: Bladder discomfort
     Route: 048
     Dates: start: 20210216, end: 20210221
  4. LERCANIDIPINE [Concomitant]
     Active Substance: LERCANIDIPINE
  5. BISOPROLOL [Concomitant]
     Active Substance: BISOPROLOL
  6. INSULIN GLARGINE [Concomitant]
     Active Substance: INSULIN GLARGINE
     Route: 058

REACTIONS (1)
  - Nephrotic syndrome [Recovered/Resolved]

NARRATIVE: CASE EVENT DATE: 20210305
